FAERS Safety Report 18991895 (Version 1)
Quarter: 2021Q1

REPORT INFORMATION
  Report Type: Spontaneous
  Country: US (occurrence: US)
  Receive Date: 20210310
  Receipt Date: 20210310
  Transmission Date: 20210420
  Serious: Yes (Life-Threatening, Hospitalization)
  Sender: FDA-Public Use
  Company Number: US-MYLANLABS-2021M1014613

PATIENT
  Age: 75 Year
  Sex: Male

DRUGS (32)
  1. PYRIDOSTIGMINE [Suspect]
     Active Substance: PYRIDOSTIGMINE
     Indication: HAEMODYNAMIC INSTABILITY
  2. PYRIDOSTIGMINE [Suspect]
     Active Substance: PYRIDOSTIGMINE
     Indication: SHOCK
  3. CARBAMAZEPINE. [Suspect]
     Active Substance: CARBAMAZEPINE
     Indication: SHOCK
  4. GABAPENTIN. [Suspect]
     Active Substance: GABAPENTIN
     Indication: GLOSSOPHARYNGEAL NEURALGIA
     Route: 065
     Dates: start: 2019
  5. GABAPENTIN. [Suspect]
     Active Substance: GABAPENTIN
     Indication: ANGIOPATHY
  6. DROXIDOPA [Suspect]
     Active Substance: DROXIDOPA
     Indication: ANGIOPATHY
  7. MEXILETINE [Suspect]
     Active Substance: MEXILETINE
     Indication: SHOCK
  8. FLUDROCORTISONE [Suspect]
     Active Substance: FLUDROCORTISONE
     Indication: SHOCK
  9. PYRIDOSTIGMINE [Suspect]
     Active Substance: PYRIDOSTIGMINE
     Indication: ANGIOPATHY
  10. PSEUDOEPHEDRINE. [Suspect]
     Active Substance: PSEUDOEPHEDRINE HYDROCHLORIDE
     Indication: GLOSSOPHARYNGEAL NEURALGIA
     Route: 065
     Dates: start: 2019
  11. PSEUDOEPHEDRINE. [Suspect]
     Active Substance: PSEUDOEPHEDRINE HYDROCHLORIDE
     Indication: HAEMODYNAMIC INSTABILITY
  12. MEXILETINE [Suspect]
     Active Substance: MEXILETINE
     Indication: ANGIOPATHY
  13. CARBAMAZEPINE. [Suspect]
     Active Substance: CARBAMAZEPINE
     Indication: HAEMODYNAMIC INSTABILITY
  14. FLUDROCORTISONE [Suspect]
     Active Substance: FLUDROCORTISONE
     Indication: GLOSSOPHARYNGEAL NEURALGIA
     Route: 065
     Dates: start: 2019
  15. FLUDROCORTISONE [Suspect]
     Active Substance: FLUDROCORTISONE
     Indication: HAEMODYNAMIC INSTABILITY
  16. PYRIDOSTIGMINE [Suspect]
     Active Substance: PYRIDOSTIGMINE
     Indication: GLOSSOPHARYNGEAL NEURALGIA
     Route: 065
     Dates: start: 2019
  17. PSEUDOEPHEDRINE. [Suspect]
     Active Substance: PSEUDOEPHEDRINE HYDROCHLORIDE
     Indication: ANGIOPATHY
  18. CARBAMAZEPINE. [Suspect]
     Active Substance: CARBAMAZEPINE
     Indication: GLOSSOPHARYNGEAL NEURALGIA
     Route: 065
     Dates: start: 2019
  19. THERMOTABS [DIETARY SUPPLEMENT] [Suspect]
     Active Substance: DIETARY SUPPLEMENT
     Indication: HAEMODYNAMIC INSTABILITY
  20. THERMOTABS [DIETARY SUPPLEMENT] [Suspect]
     Active Substance: DIETARY SUPPLEMENT
     Indication: ANGIOPATHY
  21. DROXIDOPA [Suspect]
     Active Substance: DROXIDOPA
     Indication: SHOCK
  22. MEXILETINE [Suspect]
     Active Substance: MEXILETINE
     Indication: HAEMODYNAMIC INSTABILITY
  23. THERMOTABS [DIETARY SUPPLEMENT] [Suspect]
     Active Substance: DIETARY SUPPLEMENT
     Indication: GLOSSOPHARYNGEAL NEURALGIA
     Route: 065
     Dates: start: 2019
  24. GABAPENTIN. [Suspect]
     Active Substance: GABAPENTIN
     Indication: HAEMODYNAMIC INSTABILITY
  25. GABAPENTIN. [Suspect]
     Active Substance: GABAPENTIN
     Indication: SHOCK
  26. DROXIDOPA [Suspect]
     Active Substance: DROXIDOPA
     Indication: GLOSSOPHARYNGEAL NEURALGIA
     Route: 065
     Dates: start: 2019
  27. PSEUDOEPHEDRINE. [Suspect]
     Active Substance: PSEUDOEPHEDRINE HYDROCHLORIDE
     Indication: SHOCK
  28. MEXILETINE [Suspect]
     Active Substance: MEXILETINE
     Indication: GLOSSOPHARYNGEAL NEURALGIA
     Route: 065
     Dates: start: 2019
  29. CARBAMAZEPINE. [Suspect]
     Active Substance: CARBAMAZEPINE
     Indication: ANGIOPATHY
  30. THERMOTABS [DIETARY SUPPLEMENT] [Suspect]
     Active Substance: DIETARY SUPPLEMENT
     Indication: SHOCK
  31. FLUDROCORTISONE [Suspect]
     Active Substance: FLUDROCORTISONE
     Indication: ANGIOPATHY
  32. DROXIDOPA [Suspect]
     Active Substance: DROXIDOPA
     Indication: HAEMODYNAMIC INSTABILITY

REACTIONS (2)
  - Off label use [Unknown]
  - Drug ineffective for unapproved indication [Unknown]

NARRATIVE: CASE EVENT DATE: 2019
